FAERS Safety Report 11419742 (Version 2)
Quarter: 2015Q4

REPORT INFORMATION
  Report Type: Report from Study
  Country: JP (occurrence: JP)
  Receive Date: 20150826
  Receipt Date: 20151103
  Transmission Date: 20160304
  Serious: Yes (Other)
  Sender: FDA-Public Use
  Company Number: JP-JNJFOC-20131215285

PATIENT
  Age: 47 Year
  Sex: Male

DRUGS (28)
  1. NORVIR [Suspect]
     Active Substance: RITONAVIR
     Indication: HIV INFECTION
     Route: 048
     Dates: start: 20140627
  2. EBUTOL [Suspect]
     Active Substance: ETHAMBUTOL HYDROCHLORIDE
     Indication: DISSEMINATED TUBERCULOSIS
     Route: 048
     Dates: start: 20130223
  3. ISCOTIN [Concomitant]
     Active Substance: ISONIAZID
     Indication: TUBERCULOSIS GASTROINTESTINAL
     Route: 048
     Dates: start: 20130223, end: 20130515
  4. ISCOTIN [Concomitant]
     Active Substance: ISONIAZID
     Indication: PULMONARY TUBERCULOSIS
     Route: 048
     Dates: start: 20120711, end: 20130222
  5. RIFAMPICIN [Concomitant]
     Active Substance: RIFAMPIN
     Indication: PULMONARY TUBERCULOSIS
     Route: 048
     Dates: start: 20140401, end: 20140515
  6. MYCOBUTIN [Suspect]
     Active Substance: RIFABUTIN
     Indication: TUBERCULOSIS
     Route: 048
     Dates: start: 20120907, end: 20121005
  7. EBUTOL [Suspect]
     Active Substance: ETHAMBUTOL HYDROCHLORIDE
     Indication: PULMONARY TUBERCULOSIS
     Route: 048
     Dates: start: 20130223
  8. ISCOTIN [Concomitant]
     Active Substance: ISONIAZID
     Indication: PULMONARY TUBERCULOSIS
     Route: 048
     Dates: start: 20130223, end: 20130515
  9. EBUTOL [Suspect]
     Active Substance: ETHAMBUTOL HYDROCHLORIDE
     Indication: TUBERCULOSIS GASTROINTESTINAL
     Route: 048
     Dates: start: 20130223
  10. ISENTRESS [Concomitant]
     Active Substance: RALTEGRAVIR POTASSIUM
     Indication: HIV INFECTION
     Route: 048
     Dates: start: 20130524, end: 20140626
  11. TRUVADA [Suspect]
     Active Substance: EMTRICITABINE\TENOFOVIR DISOPROXIL FUMARATE
     Indication: HIV INFECTION
     Route: 048
     Dates: start: 20120921
  12. ISCOTIN [Concomitant]
     Active Substance: ISONIAZID
     Indication: TUBERCULOSIS GASTROINTESTINAL
     Route: 048
     Dates: start: 20120711, end: 20130222
  13. CRAVIT [Suspect]
     Active Substance: LEVOFLOXACIN
     Indication: DISSEMINATED TUBERCULOSIS
     Route: 048
     Dates: start: 20121109, end: 20121130
  14. CRAVIT [Suspect]
     Active Substance: LEVOFLOXACIN
     Indication: TUBERCULOSIS GASTROINTESTINAL
     Route: 048
     Dates: start: 20121109, end: 20121130
  15. RIFAMPICIN [Concomitant]
     Active Substance: RIFAMPIN
     Indication: TUBERCULOSIS GASTROINTESTINAL
     Route: 048
     Dates: start: 20140401, end: 20140515
  16. PREZISTA [Suspect]
     Active Substance: DARUNAVIR ETHANOLATE
     Indication: HIV INFECTION
     Route: 048
     Dates: start: 20140627
  17. SULFAMETHOXAZOLE-TRIMETHOPRIM (SMZ) [Suspect]
     Active Substance: SULFAMETHOXAZOLE\TRIMETHOPRIM
     Indication: PROPHYLAXIS
     Route: 048
     Dates: start: 20120814, end: 20140926
  18. CRAVIT [Suspect]
     Active Substance: LEVOFLOXACIN
     Indication: PULMONARY TUBERCULOSIS
     Route: 048
     Dates: start: 20121109, end: 20121130
  19. EBUTOL [Suspect]
     Active Substance: ETHAMBUTOL HYDROCHLORIDE
     Indication: DISSEMINATED TUBERCULOSIS
     Route: 048
     Dates: start: 20120711, end: 20130222
  20. EBUTOL [Suspect]
     Active Substance: ETHAMBUTOL HYDROCHLORIDE
     Indication: TUBERCULOSIS GASTROINTESTINAL
     Route: 048
     Dates: start: 20120711, end: 20130222
  21. EBUTOL [Suspect]
     Active Substance: ETHAMBUTOL HYDROCHLORIDE
     Indication: PULMONARY TUBERCULOSIS
     Route: 048
     Dates: start: 20120711, end: 20130222
  22. PREZISTA [Suspect]
     Active Substance: DARUNAVIR ETHANOLATE
     Indication: HIV INFECTION
     Dosage: 400 MG X 2 TABLETS PER DAY, ONCE DAILY
     Route: 048
     Dates: start: 20120921, end: 20130510
  23. ISCOTIN [Concomitant]
     Active Substance: ISONIAZID
     Indication: DISSEMINATED TUBERCULOSIS
     Route: 048
     Dates: start: 20120711, end: 20130222
  24. PYDOXAL [Concomitant]
     Active Substance: PYRIDOXAL
     Indication: PROPHYLAXIS
     Route: 048
     Dates: start: 20120711, end: 20140515
  25. ISENTRESS [Concomitant]
     Active Substance: RALTEGRAVIR POTASSIUM
     Indication: HIV INFECTION
     Route: 048
     Dates: start: 20130511, end: 20130523
  26. NORVIR [Suspect]
     Active Substance: RITONAVIR
     Indication: HIV INFECTION
     Route: 048
     Dates: start: 20120921, end: 20130510
  27. ISCOTIN [Concomitant]
     Active Substance: ISONIAZID
     Indication: DISSEMINATED TUBERCULOSIS
     Route: 048
     Dates: start: 20130223, end: 20130515
  28. RIFAMPICIN [Concomitant]
     Active Substance: RIFAMPIN
     Indication: DISSEMINATED TUBERCULOSIS
     Route: 048
     Dates: start: 20140401, end: 20140515

REACTIONS (4)
  - Pancytopenia [Recovering/Resolving]
  - Musculoskeletal stiffness [Recovering/Resolving]
  - Nausea [Recovered/Resolved]
  - Renal impairment [Not Recovered/Not Resolved]

NARRATIVE: CASE EVENT DATE: 201209
